FAERS Safety Report 10549551 (Version 1)
Quarter: 2014Q4

REPORT INFORMATION
  Report Type: Spontaneous
  Country: US (occurrence: None)
  Receive Date: 20141020
  Receipt Date: 20141020
  Transmission Date: 20150529
  Serious: No
  Sender: FDA-Public Use
  Company Number: AEGR000637

PATIENT
  Age: 71 Year
  Sex: Female
  Weight: 78.5 kg

DRUGS (18)
  1. JUXTAPID [Suspect]
     Active Substance: LOMITAPIDE MESYLATE
     Indication: TYPE IIA HYPERLIPIDAEMIA
     Route: 048
     Dates: start: 20140813, end: 20140827
  2. VOLTAREN [Concomitant]
     Active Substance: DICLOFENAC SODIUM
  3. VIT C (ASCORBIC ACID, CALCIUM) [Concomitant]
  4. QUINAPRIL (QUINAPRIL HYDROCHLORIDE) [Concomitant]
  5. PRAVACHOL (PRAVASTATIN SODIUM) [Concomitant]
  6. ZANAFLEX [Concomitant]
     Active Substance: TIZANIDINE HYDROCHLORIDE
  7. LASIX [Concomitant]
     Active Substance: FUROSEMIDE
  8. VALTREX [Concomitant]
     Active Substance: VALACYCLOVIR HYDROCHLORIDE
  9. CO Q 10 (UBIDECARENONE) [Concomitant]
  10. VITAMIN B (VITAMIN B COMPLEX) [Concomitant]
  11. PRILOSEC (OMEPRAZOLE MAGNESIUM) [Concomitant]
  12. OMEGA 3 6 9 (OMEGA 9 FATTY ACIDS, OMEGA-3 FATTY ACIDS, OMEGA-6 FATTY ACIDS) [Concomitant]
  13. VITAMINS (ASCORBIC ACID, ERGOCALCIFEROL, NICOTINAMIDE, RETINOL, RIBOFLAVIN, THIAMINE HYDROCHLORIDE) [Concomitant]
  14. B12 (CYANOCOBALAMIN) [Concomitant]
  15. ZETIA [Concomitant]
     Active Substance: EZETIMIBE
  16. ASPIRIN. [Concomitant]
     Active Substance: ASPIRIN
  17. POTASSIUM CHLORIDE. [Concomitant]
     Active Substance: POTASSIUM CHLORIDE
  18. VIT E (TOCOPHEROL) [Concomitant]

REACTIONS (3)
  - Blood pressure decreased [None]
  - Drug effect incomplete [None]
  - Weight decreased [None]

NARRATIVE: CASE EVENT DATE: 20140613
